FAERS Safety Report 14842090 (Version 7)
Quarter: 2018Q2

REPORT INFORMATION
  Report Type: Report from Study
  Country: US (occurrence: US)
  Receive Date: 20180503
  Receipt Date: 20180621
  Transmission Date: 20180711
  Serious: Yes (Other)
  Sender: FDA-Public Use
  Company Number: US-JAZZ-2018-US-006608

PATIENT
  Age: 44 Year
  Sex: Female

DRUGS (20)
  1. XYREM [Suspect]
     Active Substance: SODIUM OXYBATE
     Dosage: 3.75 G, BID
     Route: 048
     Dates: start: 20180511, end: 201805
  2. METHADONE HCL [Concomitant]
     Active Substance: METHADONE HYDROCHLORIDE
  3. XYREM [Suspect]
     Active Substance: SODIUM OXYBATE
     Dosage: 3 G, BID
     Route: 048
     Dates: start: 20180418, end: 201804
  4. XYREM [Suspect]
     Active Substance: SODIUM OXYBATE
     Dosage: 2.25 G, BID
     Route: 048
     Dates: start: 20180502, end: 20180510
  5. MORPHINE SULFATE. [Concomitant]
     Active Substance: MORPHINE SULFATE
  6. XYREM [Suspect]
     Active Substance: SODIUM OXYBATE
     Indication: NARCOLEPSY
     Dosage: 2.25 G, BID
     Route: 048
     Dates: start: 20180410, end: 201804
  7. VITAMIN D3 [Concomitant]
     Active Substance: CHOLECALCIFEROL
  8. MODAFINIL. [Concomitant]
     Active Substance: MODAFINIL
  9. PSEUDOEPHEDRINE HYDROCHLORIDE. [Concomitant]
     Active Substance: PSEUDOEPHEDRINE HYDROCHLORIDE
  10. XYREM [Suspect]
     Active Substance: SODIUM OXYBATE
     Dosage: 4.5 G, BID
     Route: 048
     Dates: start: 201804, end: 201804
  11. XYREM [Suspect]
     Active Substance: SODIUM OXYBATE
     Dosage: 6 G TOTAL NIGHTLY DOSE
     Route: 048
     Dates: start: 2018
  12. CLONAZEPAM. [Concomitant]
     Active Substance: CLONAZEPAM
  13. RITALIN [Concomitant]
     Active Substance: METHYLPHENIDATE HYDROCHLORIDE
  14. XYREM [Suspect]
     Active Substance: SODIUM OXYBATE
     Dosage: 3 G, BID
     Route: 048
     Dates: start: 201805
  15. VITAMIN B12 [Concomitant]
     Active Substance: CYANOCOBALAMIN
  16. ADDERALL [Concomitant]
     Active Substance: AMPHETAMINE ASPARTATE\AMPHETAMINE SULFATE\DEXTROAMPHETAMINE SACCHARATE\DEXTROAMPHETAMINE SULFATE
  17. CYMBALTA [Concomitant]
     Active Substance: DULOXETINE HYDROCHLORIDE
  18. METHYLPHENIDATE. [Concomitant]
     Active Substance: METHYLPHENIDATE
  19. IBUPROFEN. [Concomitant]
     Active Substance: IBUPROFEN
  20. MIRALAX [Concomitant]
     Active Substance: POLYETHYLENE GLYCOL 3350

REACTIONS (22)
  - Dry eye [Recovering/Resolving]
  - Nasal congestion [Unknown]
  - Intentional product use issue [Unknown]
  - Muscle twitching [Recovering/Resolving]
  - Eczema [Recovering/Resolving]
  - Fatigue [Not Recovered/Not Resolved]
  - Fine motor skill dysfunction [Not Recovered/Not Resolved]
  - Dry skin [Recovering/Resolving]
  - Tremor [Recovering/Resolving]
  - Anxiety [Not Recovered/Not Resolved]
  - Hair texture abnormal [Recovering/Resolving]
  - Vision blurred [Recovering/Resolving]
  - Corneal abrasion [Recovering/Resolving]
  - Eyelid ptosis [Recovering/Resolving]
  - Panic attack [Recovered/Resolved]
  - Nail disorder [Not Recovered/Not Resolved]
  - Hyperacusis [Unknown]
  - Dehydration [Not Recovered/Not Resolved]
  - Feeling abnormal [Unknown]
  - Condition aggravated [Recovering/Resolving]
  - Condition aggravated [Not Recovered/Not Resolved]
  - Dyspnoea [Unknown]

NARRATIVE: CASE EVENT DATE: 2018
